FAERS Safety Report 7237934-9 (Version None)
Quarter: 2011Q1

REPORT INFORMATION
  Report Type: 
  Country: None (occurrence: None)
  Receive Date: 20110121
  Receipt Date: 20110110
  Transmission Date: 20110831
  Serious: Yes (Hospitalization, Other)
  Sender: FDA-Public Use
  Company Number: FR-ELI_LILLY_AND_COMPANY-FR201101001901

PATIENT
  Sex: Male

DRUGS (4)
  1. ZYPREXA [Suspect]
     Indication: BIPOLAR DISORDER
     Dosage: 20 MG, DAILY (1/D)
     Route: 048
     Dates: start: 20101205, end: 20101210
  2. ZOLPIDEM [Concomitant]
  3. DEPAKOTE [Concomitant]
     Indication: BIPOLAR DISORDER
     Dosage: 500 MG, 3/D
     Route: 048
     Dates: start: 20101205, end: 20101210
  4. METHADONE [Concomitant]

REACTIONS (13)
  - TACHYCARDIA [None]
  - DISORIENTATION [None]
  - TACHYPNOEA [None]
  - NEUTROPHIL COUNT INCREASED [None]
  - RHABDOMYOLYSIS [None]
  - C-REACTIVE PROTEIN INCREASED [None]
  - PLATELET COUNT INCREASED [None]
  - SOMNOLENCE [None]
  - PYREXIA [None]
  - RALES [None]
  - HYPOXIA [None]
  - BLOOD CREATINE PHOSPHOKINASE INCREASED [None]
  - WHITE BLOOD CELL COUNT INCREASED [None]
